FAERS Safety Report 7654651-1 (Version None)
Quarter: 2011Q3

REPORT INFORMATION
  Report Type: 
  Country: None (occurrence: None)
  Receive Date: 20110804
  Receipt Date: 20110725
  Transmission Date: 20111222
  Serious: Yes (Hospitalization)
  Sender: FDA-Public Use
  Company Number: US-BRISTOL-MYERS SQUIBB COMPANY-15921380

PATIENT
  Age: 75 Year
  Sex: Male
  Weight: 77 kg

DRUGS (15)
  1. LAMIVUDINE [Concomitant]
  2. BUDESONIDE [Interacting]
     Indication: COLITIS
     Route: 048
  3. LISINOPRIL [Concomitant]
  4. LEVOTHYROXINE SODIUM [Concomitant]
  5. TRAZODONE HCL [Concomitant]
  6. CHOLECALCIFEROL [Concomitant]
     Dosage: 1 DF = 400 UNITS
  7. FONDAPARINUX SODIUM [Concomitant]
     Route: 058
  8. VARDENAFIL HYDROCHLORIDE (LEVITRA) [Concomitant]
  9. RITONAVIR [Interacting]
     Indication: HIV INFECTION
  10. TESTOSTERONE [Concomitant]
     Dosage: TESTOSTERONE PATCH
  11. ATAZANAVIR [Suspect]
     Indication: HIV INFECTION
  12. NEVIRAPINE [Concomitant]
  13. CALCITRIOL [Concomitant]
  14. ATENOLOL [Concomitant]
  15. DIPHENOXYLATE HCL + ATROPINE SULFATE [Concomitant]
     Dosage: 4 TIMES DAILY

REACTIONS (2)
  - CUSHING'S SYNDROME [None]
  - DRUG INTERACTION [None]
